FAERS Safety Report 19168425 (Version 1)
Quarter: 2021Q2

REPORT INFORMATION
  Report Type: Spontaneous
  Country: US (occurrence: US)
  Receive Date: 20210422
  Receipt Date: 20210422
  Transmission Date: 20210717
  Serious: Yes (Hospitalization)
  Sender: FDA-Public Use
  Company Number: US-ALKERMES INC.-ALK-2021-002001

PATIENT

DRUGS (1)
  1. VIVITROL [Suspect]
     Active Substance: NALTREXONE
     Indication: ALCOHOL USE DISORDER
     Dosage: 380 MILLIGRAM, QMO
     Route: 030

REACTIONS (4)
  - Gait disturbance [Recovered/Resolved]
  - Injection site haematoma [Recovered/Resolved]
  - Injection site reaction [Recovered/Resolved]
  - Withdrawal syndrome [Recovered/Resolved]
